FAERS Safety Report 18975211 (Version 1)
Quarter: 2021Q1

REPORT INFORMATION
  Report Type: Spontaneous
  Country: US (occurrence: US)
  Receive Date: 20210305
  Receipt Date: 20210305
  Transmission Date: 20210420
  Serious: No
  Sender: FDA-Public Use
  Company Number: US-NEPHRON STERILE COMPOUNDING CENTER-2107626

PATIENT
  Age: 21 Year
  Sex: Female
  Weight: 79.4 kg

DRUGS (4)
  1. AMPICILLIN SODIUM. [Concomitant]
     Active Substance: AMPICILLIN SODIUM
     Route: 040
     Dates: start: 20210220, end: 20210221
  2. OXYTOCIN. [Concomitant]
     Active Substance: OXYTOCIN
     Route: 041
     Dates: start: 20210220, end: 20210220
  3. LACTATED RINGERS SOLUTION [Concomitant]
     Active Substance: CALCIUM CHLORIDE\POTASSIUM CHLORIDE\SODIUM CHLORIDE\SODIUM LACTATE
     Route: 041
     Dates: start: 20210220, end: 20210220
  4. FENTANYL CITRATE 500MCG AND BUPIVACAINE HYDROCHLORIDE 0.125% 312.5MG I [Suspect]
     Active Substance: BUPIVACAINE HYDROCHLORIDE\FENTANYL CITRATE
     Indication: LABOUR PAIN
     Route: 008

REACTIONS (1)
  - Drug ineffective [Recovered/Resolved]

NARRATIVE: CASE EVENT DATE: 20210220
